FAERS Safety Report 4491048-X (Version None)
Quarter: 2004Q3

REPORT INFORMATION
  Report Type: 
  Country: None (occurrence: None)
  Receive Date: 20040927
  Receipt Date: 20040810
  Transmission Date: 20050211
  Serious: No
  Sender: FDA-Public Use
  Company Number: USA040875002

PATIENT
  Age: 51 Year
  Sex: Male
  Weight: 77 kg

DRUGS (1)
  1. STRATTERA [Suspect]
     Dosage: 40 MG IN THE MORNING
     Dates: start: 20040804, end: 20040806

REACTIONS (4)
  - DRUG INEFFECTIVE [None]
  - ERECTILE DYSFUNCTION [None]
  - FEELING ABNORMAL [None]
  - INSOMNIA [None]
